FAERS Safety Report 7571367-0 (Version None)
Quarter: 2011Q2

REPORT INFORMATION
  Report Type: 
  Country: None (occurrence: None)
  Receive Date: 20110624
  Receipt Date: 20110614
  Transmission Date: 20111010
  Serious: Yes (Other)
  Sender: FDA-Public Use
  Company Number: B0728240A

PATIENT
  Age: 33 Year
  Sex: Male

DRUGS (6)
  1. CLONAZEPAM [Suspect]
     Dosage: 10MG PER DAY
     Route: 048
  2. GAMMA-BUTYROLACTONE [Suspect]
     Dosage: 50ML PER DAY
     Route: 048
  3. PAROXETINE HCL [Suspect]
     Dosage: 40MG PER DAY
     Route: 048
  4. KEPPRA [Suspect]
     Dosage: 750MG PER DAY
     Route: 048
  5. DOXEPIN [Suspect]
     Dosage: 100MG PER DAY
     Route: 048
  6. DIAZEPAM [Suspect]
     Dosage: 20MG PER DAY
     Route: 048

REACTIONS (2)
  - AGGRESSION [None]
  - DRUG ABUSE [None]
